FAERS Safety Report 7787995-3 (Version None)
Quarter: 2011Q3

REPORT INFORMATION
  Report Type: 
  Country: None (occurrence: None)
  Receive Date: 20110930
  Receipt Date: 20110922
  Transmission Date: 20111222
  Serious: Yes (Hospitalization)
  Sender: FDA-Public Use
  Company Number: US-AMGEN-USASP2011040811

PATIENT
  Age: 6 Year
  Sex: Male

DRUGS (1)
  1. ARANESP [Suspect]
     Indication: NEPHROTIC SYNDROME
     Dates: start: 20110401

REACTIONS (2)
  - COMA [None]
  - CONVULSION [None]
